FAERS Safety Report 4715043-8 (Version None)
Quarter: 2005Q3

REPORT INFORMATION
  Report Type: 
  Country: None (occurrence: None)
  Receive Date: 20050715
  Receipt Date: 20050708
  Transmission Date: 20060218
  Serious: Yes (Death, Hospitalization)
  Sender: FDA-Public Use
  Company Number: BR-JNJFOC-20050605947

PATIENT
  Age: 74 Year
  Sex: Female
  Weight: 30 kg

DRUGS (2)
  1. ULTRACET [Suspect]
     Indication: PAIN
  2. TRAMADOL HCL [Concomitant]

REACTIONS (1)
  - DEATH [None]
